FAERS Safety Report 10173353 (Version 1)
Quarter: 2014Q2

REPORT INFORMATION
  Report Type: Spontaneous
  Country: US (occurrence: US)
  Receive Date: 20140515
  Receipt Date: 20140515
  Transmission Date: 20141212
  Serious: No
  Sender: FDA-Public Use
  Company Number: US-PFIZER INC-2014131027

PATIENT
  Sex: Female

DRUGS (1)
  1. EFFEXOR XR [Suspect]
     Indication: MENOPAUSAL SYMPTOMS
     Dosage: 37.5 MG, UNK
     Dates: end: 20140402

REACTIONS (8)
  - Withdrawal syndrome [Not Recovered/Not Resolved]
  - Hyperhidrosis [Unknown]
  - Swollen tongue [Unknown]
  - Palpitations [Unknown]
  - Headache [Unknown]
  - Hypoaesthesia [Unknown]
  - Feeling abnormal [Unknown]
  - Circumstance or information capable of leading to medication error [Unknown]
